FAERS Safety Report 14191390 (Version 1)
Quarter: 2017Q4

REPORT INFORMATION
  Report Type: Spontaneous
  Country: IN (occurrence: IN)
  Receive Date: 20171115
  Receipt Date: 20171115
  Transmission Date: 20180321
  Serious: Yes (Hospitalization, Other)
  Sender: FDA-Public Use
  Company Number: IN-ALEMBIC PHARMACUETICALS LIMITED-2017SCAL000904

PATIENT

DRUGS (9)
  1. AZORAN /00001501/ [Suspect]
     Active Substance: AZATHIOPRINE
     Indication: RHEUMATOID ARTHRITIS
     Dosage: 50 MG, BID
  2. HYDROCHLOROTHIAZIDE. [Suspect]
     Active Substance: HYDROCHLOROTHIAZIDE
     Indication: IMMUNOSUPPRESSION
     Dosage: 200 MG, OD
  3. AZORAN                             /00001501/ [Suspect]
     Active Substance: AZATHIOPRINE
     Indication: ARTHRALGIA
  4. WYSOLONE [Suspect]
     Active Substance: PREDNISOLONE
     Dosage: 2.5 MG, UNK
  5. LEFNO [Suspect]
     Active Substance: LEFLUNOMIDE
     Indication: RHEUMATOID ARTHRITIS
     Dosage: 20 MG, OD
  6. SULFASALAZINE. [Suspect]
     Active Substance: SULFASALAZINE
     Indication: IMMUNOSUPPRESSION
     Dosage: UNK
  7. AZORAN                             /00001501/ [Suspect]
     Active Substance: AZATHIOPRINE
     Indication: FATIGUE
     Dosage: HALF TABLET OF 50 MG
  8. WYSOLONE [Suspect]
     Active Substance: PREDNISOLONE
     Indication: INTERSTITIAL LUNG DISEASE
     Dosage: 20 MG, OD
  9. HYDROXYCHLOROQUINE [Suspect]
     Active Substance: HYDROXYCHLOROQUINE
     Indication: RHEUMATOID ARTHRITIS
     Dosage: 200 MG, OD

REACTIONS (3)
  - Arthritis [Recovered/Resolved]
  - Tuberculosis [Recovered/Resolved]
  - Product use in unapproved indication [Unknown]
